FAERS Safety Report 22237521 (Version 2)
Quarter: 2023Q2

REPORT INFORMATION
  Report Type: Spontaneous
  Country: CN (occurrence: CN)
  Receive Date: 20230421
  Receipt Date: 20230517
  Transmission Date: 20230722
  Serious: Yes (Hospitalization)
  Sender: FDA-Public Use
  Company Number: CN-NOVOPROD-1051590

PATIENT
  Age: 71 Year
  Sex: Female

DRUGS (1)
  1. INSULIN ASPART [Suspect]
     Active Substance: INSULIN ASPART
     Indication: Type 2 diabetes mellitus
     Dosage: 10 IU, TID (10 U IN THE MORNING, 10 U AT NOON AND 10 U IN THE EVENING)

REACTIONS (1)
  - Ulcerative keratitis [Unknown]
